FAERS Safety Report 9651557 (Version 1)
Quarter: 2013Q4

REPORT INFORMATION
  Report Type: Spontaneous
  Country: US (occurrence: US)
  Receive Date: 20131029
  Receipt Date: 20131029
  Transmission Date: 20140711
  Serious: Yes (Life-Threatening, Hospitalization, Other)
  Sender: FDA-Public Use
  Company Number: US-ENDO PHARMACEUTICALS INC.-HCDA20110086

PATIENT
  Sex: Male

DRUGS (1)
  1. HYDROCODONE/ACETAMINOPHEN 7.5MG/650MG [Suspect]
     Indication: DRUG ABUSE
     Dosage: UNKNOWN
     Route: 048

REACTIONS (3)
  - Drug diversion [Recovered/Resolved]
  - Intentional overdose [Recovered/Resolved]
  - Drug abuse [Unknown]
